FAERS Safety Report 9138246 (Version 5)
Quarter: 2015Q2

REPORT INFORMATION
  Report Type: Spontaneous
  Country: TR (occurrence: TR)
  Receive Date: 20130305
  Receipt Date: 20150427
  Transmission Date: 20150821
  Serious: Yes (Other)
  Sender: FDA-Public Use
  Company Number: TR-AMGEN-TURSP2013014324

PATIENT
  Age: 48 Year
  Sex: Female

DRUGS (6)
  1. ENBREL [Suspect]
     Active Substance: ETANERCEPT
     Dosage: 25 MG, CYCLIC; PER 10 DAYS
     Route: 065
     Dates: end: 201411
  2. ENBREL [Suspect]
     Active Substance: ETANERCEPT
     Dosage: 25 MG, CYCLIC; PER 15 DAYS
     Route: 065
     Dates: start: 201405
  3. ENBREL [Suspect]
     Active Substance: ETANERCEPT
     Dosage: 25 MG, CYCLIC; PER 10 DAYS
     Route: 058
     Dates: start: 201503
  4. ENBREL [Suspect]
     Active Substance: ETANERCEPT
     Dosage: 25 MG, WEEKLY
     Route: 058
     Dates: start: 201411, end: 201503
  5. ENBREL [Suspect]
     Active Substance: ETANERCEPT
     Dosage: 25 MG, CYCLIC; PER 10 DAYS
     Route: 058
     Dates: start: 201205
  6. ENBREL [Suspect]
     Active Substance: ETANERCEPT
     Indication: ANKYLOSING SPONDYLITIS
     Dosage: 25 MG, CYCLIC; PER 10 DAYS
     Route: 058
     Dates: start: 20091105, end: 201111

REACTIONS (8)
  - Joint dislocation [Not Recovered/Not Resolved]
  - Upper limb fracture [Recovered/Resolved]
  - Disease progression [Recovered/Resolved]
  - Limb deformity [Unknown]
  - Pain [Recovered/Resolved]
  - Fall [Recovered/Resolved]
  - Ankylosing spondylitis [Recovered/Resolved]
  - Accident at home [Recovered/Resolved]

NARRATIVE: CASE EVENT DATE: 20121018
